FAERS Safety Report 9387963 (Version 1)
Quarter: 2013Q3

REPORT INFORMATION
  Report Type: Spontaneous
  Country: GB (occurrence: None)
  Receive Date: 20130703
  Receipt Date: 20130703
  Transmission Date: 20140515
  Serious: Yes (Disabling, Other)
  Sender: FDA-Public Use
  Company Number: GER/UKI/13/0030334

PATIENT
  Age: 80 Year
  Sex: Male
  Weight: 74 kg

DRUGS (4)
  1. ATORVASTATIN [Suspect]
     Indication: BLOOD CHOLESTEROL INCREASED
     Route: 048
     Dates: start: 201210
  2. NORMACOL (BACTRIM) [Concomitant]
  3. OLSALAZINE (OLSALAZINE) [Concomitant]
  4. PROBIOTIC  (BIFIDOBACTERIUM LACTIS) [Concomitant]

REACTIONS (2)
  - Proctitis [None]
  - Condition aggravated [None]
